FAERS Safety Report 16023878 (Version 3)
Quarter: 2019Q2

REPORT INFORMATION
  Report Type: Report from Study
  Country: BR (occurrence: BR)
  Receive Date: 20190301
  Receipt Date: 20190530
  Transmission Date: 20190711
  Serious: Yes (Hospitalization, Other)
  Sender: FDA-Public Use
  Company Number: PHHY2019BR043385

PATIENT
  Age: 28 Year
  Sex: Female
  Weight: 87 kg

DRUGS (6)
  1. TASIGNA [Suspect]
     Active Substance: NILOTINIB
     Dosage: 400 MG, Q12H
     Route: 065
  2. TASIGNA [Suspect]
     Active Substance: NILOTINIB
     Dosage: UNK
     Route: 065
  3. IMATINIB. [Suspect]
     Active Substance: IMATINIB MESYLATE
     Indication: CHRONIC MYELOID LEUKAEMIA
     Route: 065
     Dates: start: 1997
  4. TASIGNA [Suspect]
     Active Substance: NILOTINIB
     Dosage: UNK
     Route: 065
     Dates: start: 201712
  5. TASIGNA [Suspect]
     Active Substance: NILOTINIB
     Indication: CHRONIC MYELOID LEUKAEMIA
     Dosage: UNK UNK, BID
     Route: 065
     Dates: start: 20171205
  6. DASATINIB. [Concomitant]
     Active Substance: DASATINIB
     Indication: PRODUCT USED FOR UNKNOWN INDICATION
     Dosage: UNK
     Route: 065
     Dates: start: 2012

REACTIONS (13)
  - Gingival bleeding [Recovering/Resolving]
  - Pain [Recovered/Resolved]
  - Anaemia [Recovered/Resolved]
  - Hypochloraemia [Recovered/Resolved]
  - Pyrexia [Recovering/Resolving]
  - Pain in extremity [Recovering/Resolving]
  - Fatigue [Recovered/Resolved]
  - Vaginal haemorrhage [Recovering/Resolving]
  - Chest discomfort [Recovering/Resolving]
  - Asthenia [Recovered/Resolved]
  - Chronic myeloid leukaemia recurrent [Not Recovered/Not Resolved]
  - Thrombocytopenia [Unknown]
  - Anaemia [Unknown]

NARRATIVE: CASE EVENT DATE: 201812
